FAERS Safety Report 7379163-4 (Version None)
Quarter: 2011Q1

REPORT INFORMATION
  Report Type: 
  Country: None (occurrence: None)
  Receive Date: 20110328
  Receipt Date: 20110315
  Transmission Date: 20110831
  Serious: Yes (Other)
  Sender: FDA-Public Use
  Company Number: PHHY2011GB23042

PATIENT
  Age: 54 Year
  Sex: Male

DRUGS (5)
  1. ANTIBIOTICS [Concomitant]
  2. CORTICOSTEROIDS [Concomitant]
  3. AZATHIOPRINE [Concomitant]
     Dosage: 100 MG,DAILY
  4. CYCLOSPORINE [Suspect]
     Indication: ECZEMA
     Dosage: 2 MG/KG,
  5. ACITRETIN [Concomitant]
     Dosage: 25 MG,

REACTIONS (6)
  - MALAISE [None]
  - HYPERSENSITIVITY [None]
  - HYPERTENSION [None]
  - ECZEMA [None]
  - DIARRHOEA [None]
  - ALBINISM [None]
